FAERS Safety Report 16139025 (Version 1)
Quarter: 2019Q2

REPORT INFORMATION
  Report Type: Spontaneous
  Country: US (occurrence: US)
  Receive Date: 20190401
  Receipt Date: 20190401
  Transmission Date: 20190711
  Serious: Yes (Death, Hospitalization, Other)
  Sender: FDA-Public Use
  Company Number: US-AMGEN-USASL2019033516

PATIENT
  Age: 77 Year
  Sex: Female

DRUGS (1)
  1. SENSIPAR [Suspect]
     Active Substance: CINACALCET HYDROCHLORIDE
     Indication: HYPERPARATHYROIDISM
     Dosage: 30 MILLIGRAM
     Route: 065
     Dates: start: 20181201

REACTIONS (4)
  - Mental status changes [Unknown]
  - Myalgia [Unknown]
  - Cerebrovascular accident [Fatal]
  - Bone pain [Unknown]

NARRATIVE: CASE EVENT DATE: 201812
